FAERS Safety Report 10029935 (Version 2)
Quarter: 2014Q1

REPORT INFORMATION
  Report Type: Spontaneous
  Country: US (occurrence: US)
  Receive Date: 20140323
  Receipt Date: 20140323
  Transmission Date: 20141002
  Serious: Yes (Disabling)
  Sender: FDA-Public Use
  Company Number: US-GE HEALTHCARE MEDICAL DIAGNOSTICS-OSCN-PR-0711S-0474

PATIENT
  Age: 59 Year
  Sex: Female

DRUGS (3)
  1. OMNISCAN [Suspect]
     Indication: HEADACHE
     Route: 042
     Dates: start: 20070102, end: 20070102
  2. MAGNEVIST [Suspect]
     Indication: PRODUCT USED FOR UNKNOWN INDICATION
     Route: 042
     Dates: start: 20021104, end: 20021104
  3. MAGNEVIST [Suspect]
     Dates: start: 20030714, end: 20030714

REACTIONS (1)
  - Nephrogenic systemic fibrosis [Not Recovered/Not Resolved]
